FAERS Safety Report 16724453 (Version 1)
Quarter: 2019Q3

REPORT INFORMATION
  Report Type: Spontaneous
  Country: US (occurrence: US)
  Receive Date: 20190821
  Receipt Date: 20190821
  Transmission Date: 20191005
  Serious: Yes (Other)
  Sender: FDA-Public Use
  Company Number: US-SUNOVION-2019SUN003408

PATIENT
  Age: 31 Year
  Sex: Female

DRUGS (1)
  1. LATUDA [Suspect]
     Active Substance: LURASIDONE HYDROCHLORIDE
     Dosage: UNK
     Route: 048

REACTIONS (4)
  - Product dose omission [Unknown]
  - Depression [Unknown]
  - Insomnia [Unknown]
  - Suicidal ideation [Unknown]
